FAERS Safety Report 8534322-X (Version None)
Quarter: 2012Q2

REPORT INFORMATION
  Report Type: 
  Country: None (occurrence: None)
  Receive Date: 20120412
  Receipt Date: 20090908
  Transmission Date: 20120825
  Serious: Yes (Other)
  Sender: FDA-Public Use
  Company Number: PHEH2009US10539

PATIENT
  Sex: Female

DRUGS (7)
  1. RISPERDAL [Concomitant]
  2. LIPITOR [Concomitant]
  3. PANTOPRAZOLE [Concomitant]
  4. METOCLOPRAMIDE [Concomitant]
  5. CLOZARIL [Suspect]
     Dosage: 150 MG, QAM / 650 MG QHS
  6. SYNTHROID [Concomitant]
  7. LORAZEPAM [Concomitant]

REACTIONS (3)
  - THINKING ABNORMAL [None]
  - HALLUCINATION [None]
  - MEMORY IMPAIRMENT [None]
